FAERS Safety Report 15300130 (Version 12)
Quarter: 2021Q4

REPORT INFORMATION
  Report Type: Spontaneous
  Country: US (occurrence: US)
  Receive Date: 20180821
  Receipt Date: 20211022
  Transmission Date: 20220303
  Serious: Yes (Hospitalization, Other)
  Sender: FDA-Public Use
  Company Number: US-PFIZER INC-2018334526

PATIENT
  Age: 87 Year
  Sex: Male

DRUGS (3)
  1. BOSULIF [Suspect]
     Active Substance: BOSUTINIB MONOHYDRATE
     Indication: Chronic myeloid leukaemia
     Dosage: 100MG, UNK
     Dates: start: 20180720
  2. BOSULIF [Suspect]
     Active Substance: BOSUTINIB MONOHYDRATE
     Dosage: 400 MG, DAILY (TAKE 4 TABLETS DAILY BY MOUTH)
     Route: 048
     Dates: start: 20180720
  3. BOSULIF [Suspect]
     Active Substance: BOSUTINIB MONOHYDRATE
     Dosage: 400 MG, 1X/DAY
     Route: 048

REACTIONS (3)
  - Volvulus [Unknown]
  - Memory impairment [Unknown]
  - Rash [Unknown]

NARRATIVE: CASE EVENT DATE: 20180101
